FAERS Safety Report 10397159 (Version 1)
Quarter: 2014Q3

REPORT INFORMATION
  Report Type: Spontaneous
  Country: US (occurrence: US)
  Receive Date: 20140820
  Receipt Date: 20140820
  Transmission Date: 20150326
  Serious: Yes (Hospitalization)
  Sender: FDA-Public Use
  Company Number: US-BAUSCH-SYM-2014-24200

PATIENT
  Age: 49 Year
  Sex: Female

DRUGS (4)
  1. OYSCO [Concomitant]
     Indication: PRODUCT USED FOR UNKNOWN INDICATION
  2. GEODON [Concomitant]
     Active Substance: ZIPRASIDONE HYDROCHLORIDE\ZIPRASIDONE MESYLATE
     Indication: PRODUCT USED FOR UNKNOWN INDICATION
  3. XENAZINE [Suspect]
     Active Substance: TETRABENAZINE
     Route: 048
     Dates: start: 20130606, end: 20140714
  4. XENAZINE [Suspect]
     Active Substance: TETRABENAZINE
     Indication: HUNTINGTON^S DISEASE
     Route: 048
     Dates: start: 20130606, end: 20140714

REACTIONS (1)
  - Investigation [Unknown]

NARRATIVE: CASE EVENT DATE: 20140714
